FAERS Safety Report 22705172 (Version 5)
Quarter: 2023Q4

REPORT INFORMATION
  Report Type: Spontaneous
  Country: US (occurrence: US)
  Receive Date: 20230714
  Receipt Date: 20231206
  Transmission Date: 20240110
  Serious: Yes (Other)
  Sender: FDA-Public Use
  Company Number: US-SA-SAC20230713001187

PATIENT
  Age: 67 Year
  Sex: Female
  Weight: 74.5 kg

DRUGS (1)
  1. CAPRELSA [Suspect]
     Active Substance: VANDETANIB
     Indication: Thyroid cancer
     Dosage: 300 MG, QD
     Route: 048
     Dates: start: 20230712

REACTIONS (6)
  - Impaired gastric emptying [Not Recovered/Not Resolved]
  - Abdominal discomfort [Unknown]
  - Asthenia [Unknown]
  - Wound [Unknown]
  - Glare [Unknown]
  - Frequent bowel movements [Unknown]

NARRATIVE: CASE EVENT DATE: 20230101
